FAERS Safety Report 5607941-8 (Version None)
Quarter: 2008Q1

REPORT INFORMATION
  Report Type: 
  Country: None (occurrence: None)
  Receive Date: 20080130
  Receipt Date: 20080123
  Transmission Date: 20080703
  Serious: Yes (Other)
  Sender: FDA-Public Use
  Company Number: JP-MERCK-0712USA09320

PATIENT
  Age: 85 Year
  Sex: Female

DRUGS (9)
  1. PEPCID RPD [Suspect]
     Route: 048
  2. STARSIS [Suspect]
     Indication: DIABETES MELLITUS
     Route: 048
     Dates: start: 20071217, end: 20071228
  3. STARSIS [Suspect]
     Route: 048
     Dates: end: 20071212
  4. AMLODIPINE BESYLATE [Concomitant]
     Route: 048
  5. MUCOSTA [Concomitant]
     Route: 048
  6. GLAKAY [Concomitant]
     Route: 048
  7. ROCALTROL [Concomitant]
     Route: 048
  8. FLOMOX [Concomitant]
     Route: 048
  9. UNASYN (SULTAMICILLIN TOSYLATE) [Concomitant]
     Indication: POST PROCEDURAL INFECTION
     Route: 041
     Dates: start: 20071214, end: 20071215

REACTIONS (1)
  - HYPERKALAEMIA [None]
